FAERS Safety Report 18715274 (Version 1)
Quarter: 2021Q1

REPORT INFORMATION
  Report Type: Spontaneous
  Country: US (occurrence: US)
  Receive Date: 20210108
  Receipt Date: 20210108
  Transmission Date: 20210419
  Serious: Yes (Hospitalization)
  Sender: FDA-Public Use
  Company Number: US-009507513-2101USA001293

PATIENT
  Sex: Female
  Weight: 56.75 kg

DRUGS (9)
  1. DILANTIN (PHENYTOIN SODIUM) [Suspect]
     Active Substance: PHENYTOIN SODIUM
     Indication: ILL-DEFINED DISORDER
     Dosage: DAILY DOSE: 300MILLIGRAM
     Route: 048
     Dates: start: 1992, end: 1994
  2. GABAPENTIN. [Suspect]
     Active Substance: GABAPENTIN
     Indication: ILL-DEFINED DISORDER
     Dosage: DAILY DOSE: 400MILLIGRAM
     Route: 048
     Dates: start: 1994
  3. FOSAMAX [Suspect]
     Active Substance: ALENDRONATE SODIUM
     Indication: OSTEOPOROSIS
     Dosage: ?TEXT:UNKNOWN
     Route: 048
     Dates: start: 2002, end: 2002
  4. ERGOCALCIFEROL. [Suspect]
     Active Substance: ERGOCALCIFEROL
     Dosage: ?TEXT:UNKNOWN
     Route: 048
     Dates: start: 2002, end: 2002
  5. LORAZEPAM. [Suspect]
     Active Substance: LORAZEPAM
     Indication: ANXIETY
     Dosage: ?TEXT:UNKNOWN
     Route: 048
     Dates: start: 200106
  6. LORAZEPAM. [Concomitant]
     Active Substance: LORAZEPAM
     Dosage: UNK
     Dates: start: 1992, end: 1999
  7. LEVETIRACETAM. [Suspect]
     Active Substance: LEVETIRACETAM
     Indication: SEIZURE
     Dosage: ?TEXT:UNKNOWN
     Route: 065
     Dates: start: 2001, end: 200110
  8. LAMOTRIGINE. [Suspect]
     Active Substance: LAMOTRIGINE
     Indication: ILL-DEFINED DISORDER
     Dosage: ?TEXT:UNKNOWN
     Route: 048
     Dates: start: 200110, end: 200111
  9. ASCORBIC ACID. [Suspect]
     Active Substance: ASCORBIC ACID
     Indication: OSTEOPOROSIS
     Dosage: ?TEXT:UNKNOWN
     Route: 048
     Dates: start: 2002, end: 2002

REACTIONS (20)
  - Personality disorder [Recovered/Resolved]
  - Osteoporosis [Not Recovered/Not Resolved]
  - Insomnia [Not Recovered/Not Resolved]
  - Anxiety [Not Recovered/Not Resolved]
  - Feeling abnormal [Recovered/Resolved]
  - Product administration error [Not Recovered/Not Resolved]
  - Seizure [Unknown]
  - Seizure [Not Recovered/Not Resolved]
  - Chest pain [Not Recovered/Not Resolved]
  - Intentional overdose [Not Recovered/Not Resolved]
  - Visual impairment [Unknown]
  - Cerebrovascular accident [Unknown]
  - Headache [Not Recovered/Not Resolved]
  - Irritable bowel syndrome [Not Recovered/Not Resolved]
  - Fear [Not Recovered/Not Resolved]
  - Nausea [Not Recovered/Not Resolved]
  - Nervousness [Recovered/Resolved]
  - Crying [Recovered/Resolved]
  - Myocardial infarction [Not Recovered/Not Resolved]
  - Asthenia [Not Recovered/Not Resolved]

NARRATIVE: CASE EVENT DATE: 1992
